FAERS Safety Report 5230902-8 (Version None)
Quarter: 2007Q1

REPORT INFORMATION
  Report Type: 
  Country: None (occurrence: None)
  Receive Date: 20070206
  Receipt Date: 20070131
  Transmission Date: 20070707
  Serious: Yes (Other)
  Sender: FDA-Public Use
  Company Number: GB-GLAXOSMITHKLINE-B0359796A

PATIENT
  Sex: Male

DRUGS (7)
  1. SEROXAT [Suspect]
     Route: 065
     Dates: start: 19990101
  2. DIAZEPAM [Suspect]
     Route: 065
  3. THIORIDAZINE HCL [Suspect]
     Route: 065
  4. ALCOHOL [Suspect]
     Route: 065
  5. SALICYLATE [Suspect]
     Route: 065
  6. WARFARIN SODIUM [Suspect]
     Route: 065
  7. DEPAKOTE [Concomitant]
     Route: 065

REACTIONS (4)
  - DEPRESSED MOOD [None]
  - DRUG WITHDRAWAL SYNDROME [None]
  - OVERDOSE [None]
  - SUICIDAL IDEATION [None]
